FAERS Safety Report 4785960-1 (Version None)
Quarter: 2005Q3

REPORT INFORMATION
  Report Type: 
  Country: None (occurrence: None)
  Receive Date: 20050929
  Receipt Date: 20050916
  Transmission Date: 20060218
  Serious: Yes (Hospitalization)
  Sender: FDA-Public Use
  Company Number: 2005131131

PATIENT
  Sex: Female

DRUGS (1)
  1. VFEND [Suspect]
     Indication: FUNGAL INFECTION
     Dates: start: 20050101

REACTIONS (1)
  - CARDIAC DISORDER [None]
